FAERS Safety Report 7052188-4 (Version None)
Quarter: 2010Q4

REPORT INFORMATION
  Report Type: 
  Country: None (occurrence: None)
  Receive Date: 20101019
  Receipt Date: 20101013
  Transmission Date: 20110411
  Serious: Yes (Hospitalization)
  Sender: FDA-Public Use
  Company Number: FR-BRISTOL-MYERS SQUIBB COMPANY-15335797

PATIENT
  Age: 82 Year
  Sex: Female

DRUGS (10)
  1. APROVEL TABS 300 MG [Suspect]
     Dosage: 1 DF: 1 TABLET
     Route: 048
  2. DICLOFENAC SODIUM [Suspect]
     Dosage: 1 DF: 3 INTAKES UNIT NOT SPECIFIED
     Route: 048
     Dates: end: 20100821
  3. FLUDEX [Suspect]
     Dosage: 1 DF:1 EXTENDED RELEASE FILM-COATED TABLET
     Route: 048
     Dates: end: 20100821
  4. AMITRIPTYLINE HCL [Suspect]
     Dosage: LAROXYL ROCHE 40 MG/ML 1 DF: 5 DROPS IN THE MORNING AND 10 DROPS IN THE EVENING
     Route: 048
     Dates: start: 20100809, end: 20100821
  5. OXYCONTIN [Suspect]
     Dosage: OXYCONTIN SR 20 MG (OXYCODONE)1 DF: 2 EXTENDED RELEASE FILM-COATED TABLETS
     Route: 048
     Dates: start: 20100816, end: 20100821
  6. IMOVANE [Suspect]
     Dosage: EVENING
     Route: 048
  7. TAHOR [Concomitant]
     Dosage: TAHOR 80 MG (ATORVASTATIN) 1 FILM-COATED TABLET IN THE EVENING
     Route: 048
  8. PREVISCAN [Concomitant]
     Dosage: PREVISCAN 20 MG (FLUINDIONE) ALTERNATING A? AND A? SCORED TABLET DAILY
     Route: 048
     Dates: end: 20100821
  9. CORDARONE [Concomitant]
     Dosage: CORDARONE 200 MG (AMIODARONE) 1 SCORED TABLET 5 DAYS WEEKLY
     Route: 048
  10. BISOPROLOL [Concomitant]
     Dosage: MORNING
     Route: 048

REACTIONS (2)
  - CONFUSIONAL STATE [None]
  - RENAL FAILURE ACUTE [None]
